FAERS Safety Report 9914101 (Version 1)
Quarter: 2014Q1

REPORT INFORMATION
  Report Type: Spontaneous
  Country: US (occurrence: US)
  Receive Date: 20140220
  Receipt Date: 20140220
  Transmission Date: 20141002
  Serious: No
  Sender: FDA-Public Use
  Company Number: US-MALLINCKRODT-T201304616

PATIENT
  Age: 75 Year
  Sex: Male

DRUGS (2)
  1. TECHNESCAN HDP [Suspect]
     Indication: PRODUCT USED FOR UNKNOWN INDICATION
     Dosage: UNK, SINGLE
     Route: 065
     Dates: start: 20131011, end: 20131011
  2. ULTRA-TECHNEKOW DTE [Concomitant]
     Indication: PRODUCT USED FOR UNKNOWN INDICATION
     Dosage: UNK
     Route: 065
     Dates: start: 20131011, end: 20131011

REACTIONS (1)
  - Drug ineffective [Unknown]
